FAERS Safety Report 9055545 (Version 1)
Quarter: 2013Q1

REPORT INFORMATION
  Report Type: Report from Study
  Country: FR (occurrence: FR)
  Receive Date: 20130206
  Receipt Date: 20130206
  Transmission Date: 20140127
  Serious: Yes (Hospitalization)
  Sender: FDA-Public Use
  Company Number: FR-GLAXOSMITHKLINE-B0865140A

PATIENT
  Age: 60 None
  Sex: Male
  Weight: 50 kg

DRUGS (3)
  1. VALACICLOVIR [Suspect]
  2. BACTRIM [Suspect]
  3. UNSPECIFIED INGREDIENT [Suspect]
     Indication: CHRONIC LYMPHOCYTIC LEUKAEMIA

REACTIONS (3)
  - Renal tubular necrosis [Recovering/Resolving]
  - Thrombotic microangiopathy [Recovering/Resolving]
  - Renal failure acute [None]
